FAERS Safety Report 8739670 (Version 2)
Quarter: 2012Q4

REPORT INFORMATION
  Report Type: 
  Country: US (occurrence: US)
  Receive Date: 20120823
  Receipt Date: 20121010
  Transmission Date: 20130627
  Serious: Yes (Disabling, Other)
  Sender: FDA-Public Use
  Company Number: US-BAYER-2012-086852

PATIENT
  Age: 46 Year
  Sex: Female
  Weight: 73.02 kg

DRUGS (5)
  1. CIPRO [Suspect]
     Indication: CELLULITIS
     Dosage: 250 mg, UNK
     Route: 042
     Dates: start: 20110915, end: 20110919
  2. CIPRO [Suspect]
     Indication: STAPHYLOCOCCAL INFECTION
     Dosage: 750 mg, UNK
  3. VANCOMYCIN [Concomitant]
  4. ANCEF [Concomitant]
  5. SULFAMETHOXAZOLE W/TRIMETHOPRIM [Concomitant]

REACTIONS (20)
  - Muscular weakness [None]
  - Arthritis [None]
  - Spondylitis [None]
  - Muscle spasms [None]
  - Muscle tightness [None]
  - Headache [Not Recovered/Not Resolved]
  - Haematochezia [None]
  - Mucous stools [None]
  - Weight decreased [None]
  - Vision blurred [Not Recovered/Not Resolved]
  - Dizziness postural [None]
  - Mass [Not Recovered/Not Resolved]
  - Pain in extremity [Not Recovered/Not Resolved]
  - Pain [Not Recovered/Not Resolved]
  - Fall [Not Recovered/Not Resolved]
  - Nausea [Not Recovered/Not Resolved]
  - Ageusia [Not Recovered/Not Resolved]
  - Eating disorder [Not Recovered/Not Resolved]
  - Abasia [Not Recovered/Not Resolved]
  - Insomnia [Not Recovered/Not Resolved]
